FAERS Safety Report 6432864-4 (Version None)
Quarter: 2009Q4

REPORT INFORMATION
  Report Type: 
  Country: None (occurrence: None)
  Receive Date: 20091109
  Receipt Date: 20091030
  Transmission Date: 20100525
  Serious: Yes (Hospitalization)
  Sender: FDA-Public Use
  Company Number: B0602345A

PATIENT
  Sex: Female

DRUGS (10)
  1. VOXRA [Suspect]
     Indication: BIPOLAR I DISORDER
     Route: 048
     Dates: start: 20090701, end: 20090730
  2. LYRICA [Suspect]
     Indication: DRUG USE FOR UNKNOWN INDICATION
     Route: 048
     Dates: end: 20090730
  3. LAMOTRIGINE [Suspect]
     Indication: BIPOLAR I DISORDER
     Route: 048
     Dates: start: 20090101, end: 20090730
  4. UNKNOWN DRUG [Suspect]
     Indication: BIPOLAR I DISORDER
     Route: 048
     Dates: start: 20090717, end: 20090730
  5. ZOPIKLON [Concomitant]
     Route: 065
  6. SERTRALINE HCL [Concomitant]
     Route: 065
  7. LERGIGAN [Concomitant]
     Route: 065
  8. NOZINAN [Concomitant]
     Route: 048
  9. THERALENE [Concomitant]
     Route: 065
  10. ACETAMINOPHEN [Concomitant]
     Route: 065

REACTIONS (2)
  - RHABDOMYOLYSIS [None]
  - TRANSAMINASES INCREASED [None]
